FAERS Safety Report 9924406 (Version 1)
Quarter: 2014Q1

REPORT INFORMATION
  Report Type: Spontaneous
  Country: US (occurrence: None)
  Receive Date: 20140224
  Receipt Date: 20140224
  Transmission Date: 20141002
  Serious: Yes (Other)
  Sender: FDA-Public Use
  Company Number: None

PATIENT
  Age: 31 Year
  Sex: Female
  Weight: 72.58 kg

DRUGS (1)
  1. CAMILA [Suspect]
     Indication: CONTRACEPTION
     Route: 048
     Dates: start: 20140215, end: 20140221

REACTIONS (3)
  - Alopecia [None]
  - Mood swings [None]
  - Abnormal dreams [None]
